FAERS Safety Report 4809346-6 (Version None)
Quarter: 2005Q4

REPORT INFORMATION
  Report Type: 
  Country: None (occurrence: None)
  Receive Date: 20051021
  Receipt Date: 20051007
  Transmission Date: 20060501
  Serious: Yes (Other)
  Sender: FDA-Public Use
  Company Number: HQWYE417328APR05

PATIENT
  Age: 15 Year
  Sex: Male

DRUGS (1)
  1. BENEFIX [Suspect]
     Indication: FACTOR IX DEFICIENCY
     Dosage: ^VARIABLE^ DOSES GIVEN BOTH PROPHYLACTICALLY AND ON-DEMAND ; 3000 IU 1X PER 1 DAY
     Dates: start: 20050218, end: 20050218

REACTIONS (4)
  - DRUG INEFFECTIVE [None]
  - HAEMARTHROSIS [None]
  - MUSCLE HAEMORRHAGE [None]
  - SOFT TISSUE HAEMORRHAGE [None]
